FAERS Safety Report 22305979 (Version 1)
Quarter: 2023Q2

REPORT INFORMATION
  Report Type: Spontaneous
  Country: GB (occurrence: GB)
  Receive Date: 20230511
  Receipt Date: 20230511
  Transmission Date: 20230722
  Serious: Yes (Death, Hospitalization)
  Sender: FDA-Public Use
  Company Number: GB-STRIDES ARCOLAB LIMITED-2023SP006823

PATIENT
  Age: 74 Year
  Sex: Female

DRUGS (4)
  1. METHOTREXATE [Suspect]
     Active Substance: METHOTREXATE
     Indication: Rheumatoid arthritis
     Dosage: UNK
     Route: 065
  2. FOLIC ACID [Concomitant]
     Active Substance: FOLIC ACID
     Indication: Vitamin supplementation
     Dosage: UNK
     Route: 065
  3. PREDNISOLONE [Concomitant]
     Active Substance: PREDNISOLONE
     Indication: Rheumatoid arthritis
     Dosage: UNK
     Route: 065
  4. SULFASALAZINE [Concomitant]
     Active Substance: SULFASALAZINE
     Indication: Rheumatoid arthritis
     Dosage: UNK
     Route: 065

REACTIONS (21)
  - Hypoalbuminaemia [Fatal]
  - Oedema peripheral [Fatal]
  - Cachexia [Fatal]
  - Diarrhoea [Fatal]
  - Hypervolaemia [Fatal]
  - Hyperferritinaemia [Fatal]
  - Vitamin B12 increased [Fatal]
  - Folate deficiency [Fatal]
  - C-reactive protein increased [Fatal]
  - Blood alkaline phosphatase increased [Fatal]
  - Aspartate aminotransferase increased [Fatal]
  - Blood lactate dehydrogenase increased [Fatal]
  - Hypothyroidism [Fatal]
  - Pleural effusion [Fatal]
  - Aortic stenosis [Fatal]
  - Ascites [Fatal]
  - Splenomegaly [Fatal]
  - Dyspnoea [Fatal]
  - Jaundice [Fatal]
  - Pancytopenia [Fatal]
  - Toxicity to various agents [Fatal]
